FAERS Safety Report 22526790 (Version 1)
Quarter: 2023Q2

REPORT INFORMATION
  Report Type: Spontaneous
  Country: CN (occurrence: CN)
  Receive Date: 20230606
  Receipt Date: 20230606
  Transmission Date: 20230721
  Serious: Yes (Other)
  Sender: FDA-Public Use
  Company Number: CN-PFIZER INC-PV202300098032

PATIENT
  Age: 65 Year
  Sex: Male
  Weight: 68 kg

DRUGS (2)
  1. VORICONAZOLE [Suspect]
     Active Substance: VORICONAZOLE
     Indication: Antifungal treatment
     Dosage: 200 MG, 2X/DAY
     Route: 048
     Dates: start: 20230512
  2. VORICONAZOLE [Suspect]
     Active Substance: VORICONAZOLE
     Dosage: 200 MG, 2X/DAY
     Route: 048
     Dates: start: 20230523

REACTIONS (5)
  - Eyelids pruritus [Recovering/Resolving]
  - Erythema of eyelid [Recovering/Resolving]
  - Swelling of eyelid [Recovering/Resolving]
  - Dry eye [Recovering/Resolving]
  - Abnormal sensation in eye [Recovering/Resolving]

NARRATIVE: CASE EVENT DATE: 20230524
